FAERS Safety Report 5041991-8 (Version None)
Quarter: 2006Q2

REPORT INFORMATION
  Report Type: 
  Country: None (occurrence: None)
  Receive Date: 20060627
  Receipt Date: 20060613
  Transmission Date: 20061013
  Serious: Yes (Other)
  Sender: FDA-Public Use
  Company Number: 2006077257

PATIENT
  Age: 44 Year
  Sex: Female
  Weight: 45.3597 kg

DRUGS (9)
  1. DETROL LA [Suspect]
     Indication: CYSTITIS INTERSTITIAL
     Dosage: 4 MG (4 MG, 1 IN 1 D), ORAL
     Route: 048
     Dates: start: 19980101
  2. OXYCONTIN [Concomitant]
  3. OXYCODONE (OXYCODONE) [Concomitant]
  4. DIAZEPAM [Concomitant]
  5. ADVAIR DISKUS 100/50 [Concomitant]
  6. REMERON [Concomitant]
  7. ZYPREXA [Concomitant]
  8. ESTRATEST [Concomitant]
  9. RELAFEN [Concomitant]

REACTIONS (8)
  - ARTHROPOD STING [None]
  - BLOOD URINE PRESENT [None]
  - CONDITION AGGRAVATED [None]
  - FIBROMYALGIA [None]
  - HERPES VIRUS INFECTION [None]
  - OEDEMA PERIPHERAL [None]
  - SWELLING FACE [None]
  - SYSTEMIC LUPUS ERYTHEMATOSUS [None]
